FAERS Safety Report 9082677 (Version 1)
Quarter: 2013Q1

REPORT INFORMATION
  Report Type: Report from Study
  Country: MX (occurrence: MX)
  Receive Date: 20130131
  Receipt Date: 20130131
  Transmission Date: 20140127
  Serious: Yes (Hospitalization)
  Sender: FDA-Public Use
  Company Number: MX-009507513-0908MEX00012

PATIENT
  Age: 44 Year
  Sex: Female
  Weight: 82.5 kg

DRUGS (8)
  1. RALTEGRAVIR POTASSIUM [Suspect]
     Indication: HIV INFECTION
     Dosage: 400 MG, BID
     Route: 048
     Dates: start: 20070115
  2. EMTRICITABINE (+) TENOFOVIR DISOPROZIL FUMARATE [Suspect]
     Indication: HIV INFECTION
     Dosage: 200/300 MG, QD
     Route: 048
     Dates: start: 20070115
  3. LORAZEPAM [Concomitant]
     Indication: NERVOUSNESS
     Dosage: 1 MG, QD
     Route: 048
     Dates: start: 20080303
  4. LORAZEPAM [Concomitant]
     Dosage: 1 MG, QD
     Route: 048
     Dates: start: 20080303, end: 20100906
  5. RANITIDINE [Concomitant]
     Indication: GASTRITIS
     Dosage: 300 MG, QD
     Route: 048
     Dates: start: 20080526
  6. METOCLOPRAMIDE [Concomitant]
     Dosage: 20 MG, UNK
     Dates: start: 20090428, end: 20090615
  7. CETIRIZINE HYDROCHLORIDE [Concomitant]
     Dosage: 10 MG, UNK
     Dates: start: 20090428, end: 20090615
  8. LORAZEPAM [Concomitant]
     Indication: NERVOUSNESS
     Dosage: 1 MG, QD
     Route: 048
     Dates: start: 20080303, end: 20100906

REACTIONS (1)
  - Invasive ductal breast carcinoma [Unknown]
